FAERS Safety Report 12349260 (Version 1)
Quarter: 2016Q2

REPORT INFORMATION
  Report Type: Spontaneous
  Country: FR (occurrence: FR)
  Receive Date: 20160509
  Receipt Date: 20160509
  Transmission Date: 20160815
  Serious: Yes (Other)
  Sender: FDA-Public Use
  Company Number: FR-ASTRAZENECA-2016SE48473

PATIENT
  Sex: Female

DRUGS (5)
  1. LARGACTIL [Concomitant]
     Active Substance: CHLORPROMAZINE
     Dates: start: 20150801
  2. NORDAZ [Concomitant]
     Active Substance: NORDAZEPAM
     Dates: start: 20150801
  3. XEROQUEL [Suspect]
     Active Substance: QUETIAPINE FUMARATE
     Indication: PRODUCT USED FOR UNKNOWN INDICATION
     Route: 048
     Dates: start: 20150801
  4. SERESTA [Concomitant]
     Active Substance: OXAZEPAM
     Dates: start: 20150801
  5. STILNOX [Concomitant]
     Active Substance: ZOLPIDEM TARTRATE
     Dates: start: 20150801

REACTIONS (2)
  - Exposure during pregnancy [Not Recovered/Not Resolved]
  - Gestational diabetes [Unknown]

NARRATIVE: CASE EVENT DATE: 20150816
